FAERS Safety Report 6005630-1 (Version None)
Quarter: 2008Q4

REPORT INFORMATION
  Report Type: 
  Country: None (occurrence: None)
  Receive Date: 20081216
  Receipt Date: 20081216
  Transmission Date: 20090506
  Serious: Yes (Other)
  Sender: FDA-Public Use
  Company Number: None

PATIENT
  Age: 46 Year
  Sex: Female
  Weight: 81.6475 kg

DRUGS (2)
  1. VALTREX [Suspect]
     Indication: HERPES SIMPLEX
     Dosage: 500 MG ONCE DAILY PO
     Route: 048
     Dates: start: 20081212, end: 20081212
  2. VALTREX [Suspect]
     Indication: PROPHYLAXIS
     Dosage: 500 MG ONCE DAILY PO
     Route: 048
     Dates: start: 20081212, end: 20081212

REACTIONS (6)
  - DIZZINESS [None]
  - DYSSTASIA [None]
  - FALL [None]
  - LOSS OF CONSCIOUSNESS [None]
  - MALAISE [None]
  - NAUSEA [None]
